FAERS Safety Report 18453106 (Version 3)
Quarter: 2020Q4

REPORT INFORMATION
  Report Type: Spontaneous
  Country: DE (occurrence: DE)
  Receive Date: 20201102
  Receipt Date: 20201229
  Transmission Date: 20210114
  Serious: Yes (Hospitalization)
  Sender: FDA-Public Use
  Company Number: NVSC2020DE233241

PATIENT
  Sex: Female

DRUGS (8)
  1. PALLADON [Interacting]
     Active Substance: HYDROMORPHONE
     Dosage: UNK
     Route: 065
     Dates: start: 202010, end: 202011
  2. NORTASE [Concomitant]
     Indication: PRODUCT USED FOR UNKNOWN INDICATION
     Route: 065
  3. PALLADON [Interacting]
     Active Substance: HYDROMORPHONE
     Dosage: 24 MG,QD (8 MG, TID)
     Route: 065
  4. PALLADON [Interacting]
     Active Substance: HYDROMORPHONE
     Indication: BACK PAIN
     Dosage: 2MG (2 MG, UNK)
     Route: 065
  5. PALLADON [Interacting]
     Active Substance: HYDROMORPHONE
     Dosage: 32 MG,QD (16 MG, BID [STRENGTH 4 MG])
     Route: 065
  6. PALLADON [Interacting]
     Active Substance: HYDROMORPHONE
     Dosage: 2 MG, QD
     Route: 065
  7. GABAPENTIN. [Suspect]
     Active Substance: GABAPENTIN
     Indication: PRODUCT USED FOR UNKNOWN INDICATION
     Dosage: UNK
     Route: 065
  8. PALLADON [Interacting]
     Active Substance: HYDROMORPHONE
     Dosage: 2 MG, BID
     Route: 065

REACTIONS (6)
  - Pancreatic enzyme abnormality [Not Recovered/Not Resolved]
  - Product dose omission issue [Unknown]
  - Labelled drug-drug interaction issue [Unknown]
  - Feeling cold [Unknown]
  - Drug withdrawal syndrome [Unknown]
  - Diarrhoea [Not Recovered/Not Resolved]
